FAERS Safety Report 7455950 (Version 2)
Quarter: 2013Q3

REPORT INFORMATION
  Report Type: Spontaneous
  Country: ES (occurrence: ES)
  Receive Date: 20100707
  Receipt Date: 20130718
  Transmission Date: 20140515
  Serious: Yes (Hospitalization)
  Sender: FDA-Public Use
  Company Number: ES-JNJFOC-20100700542

PATIENT
  Age: 32 Year
  Sex: Male
  Weight: 95 kg

DRUGS (2)
  1. STELARA [Suspect]
     Indication: PSORIASIS
     Route: 058
     Dates: start: 20100604
  2. STELARA [Suspect]
     Indication: PSORIASIS
     Route: 058
     Dates: end: 20110415

REACTIONS (1)
  - Cellulitis [Recovered/Resolved]
